FAERS Safety Report 8013318-0 (Version None)
Quarter: 2011Q4

REPORT INFORMATION
  Report Type: 
  Country: None (occurrence: None)
  Receive Date: 20111229
  Receipt Date: 20111219
  Transmission Date: 20120403
  Serious: Yes (Disabling, Other)
  Sender: FDA-Public Use
  Company Number: PHEH2011US010306

PATIENT
  Sex: Female
  Weight: 98.866 kg

DRUGS (11)
  1. SANDOSTATIN LAR [Suspect]
     Indication: ACROMEGALY
     Dosage: 20 MG, QMO
     Route: 030
     Dates: start: 20000101
  2. COREG [Concomitant]
     Indication: HYPERTENSION
     Dosage: 12.5 MG, BID
  3. NORVASC [Concomitant]
     Indication: HYPERTENSION
     Dosage: 5-10 MG, UNK
     Dates: start: 20080501
  4. ZEGERID [Concomitant]
  5. GLYBURIDE AND METFORMIN HCL [Concomitant]
  6. BENICAR HCT [Concomitant]
     Indication: HYPERTENSION
     Dates: start: 20071101
  7. VALIUM [Concomitant]
  8. SANDOSTATIN LAR [Suspect]
     Dosage: 30 MG, QMO
     Route: 030
     Dates: start: 20010101
  9. BUPAP [Concomitant]
  10. POTASSIUM CHLORIDE [Concomitant]
  11. LEVOTHYROXINE SODIUM [Concomitant]
     Indication: THYROID DISORDER
     Dosage: 50-75 MG, UNK
     Dates: start: 20101001

REACTIONS (2)
  - AMNESIA [None]
  - ABNORMAL DREAMS [None]
